FAERS Safety Report 4506546-X (Version None)
Quarter: 2004Q4

REPORT INFORMATION
  Report Type: 
  Country: None (occurrence: None)
  Receive Date: 20041122
  Receipt Date: 20041109
  Transmission Date: 20050328
  Serious: Yes (Other)
  Sender: FDA-Public Use
  Company Number: 200421296GDDC

PATIENT
  Age: 46 Year
  Sex: Female

DRUGS (1)
  1. KETEK [Suspect]
     Indication: UPPER RESPIRATORY TRACT INFECTION
     Dosage: DOSE: 400 MG 1 X 2
     Route: 048
     Dates: start: 20041102, end: 20041103

REACTIONS (2)
  - HYPERTENSION [None]
  - TACHYCARDIA [None]
